FAERS Safety Report 7290116-7 (Version None)
Quarter: 2011Q1

REPORT INFORMATION
  Report Type: 
  Country: None (occurrence: None)
  Receive Date: 20110214
  Receipt Date: 20110210
  Transmission Date: 20110831
  Serious: Yes (Hospitalization, Other)
  Sender: FDA-Public Use
  Company Number: SE-BRISTOL-MYERS SQUIBB COMPANY-15512940

PATIENT
  Age: 43 Year
  Sex: Female

DRUGS (3)
  1. SEROQUEL [Concomitant]
  2. LITHIUM CARBONATE [Concomitant]
  3. ABILIFY [Suspect]
     Indication: AFFECTIVE DISORDER
     Dosage: 5MGX1 DURING 4 DAYS
     Dates: start: 20110113, end: 20110117

REACTIONS (5)
  - URINARY RETENTION [None]
  - LOSS OF CONSCIOUSNESS [None]
  - BLOOD PRESSURE DECREASED [None]
  - VOMITING [None]
  - SYNCOPE [None]
